FAERS Safety Report 17683627 (Version 1)
Quarter: 2020Q2

REPORT INFORMATION
  Report Type: Spontaneous
  Country: US (occurrence: US)
  Receive Date: 20200420
  Receipt Date: 20200420
  Transmission Date: 20200714
  Serious: Yes (Death, Hospitalization, Other)
  Sender: FDA-Public Use
  Company Number: US-PERRIGO-20US005562

PATIENT
  Age: 81 Year
  Sex: Female

DRUGS (3)
  1. PREVACID 24 HR [Suspect]
     Active Substance: LANSOPRAZOLE
     Indication: GASTROOESOPHAGEAL REFLUX DISEASE
     Dosage: 15 MG, QD
     Route: 065
     Dates: start: 20090601, end: 20160701
  2. DEXILANT [Suspect]
     Active Substance: DEXLANSOPRAZOLE
     Indication: PRODUCT USED FOR UNKNOWN INDICATION
     Dosage: 60 MG, QD
     Route: 065
     Dates: start: 201310, end: 20171103
  3. OMEPRAZOLE. [Suspect]
     Active Substance: OMEPRAZOLE
     Indication: GASTROOESOPHAGEAL REFLUX DISEASE
     Dosage: 20 MG, BID
     Route: 065
     Dates: start: 20150603, end: 20150704

REACTIONS (13)
  - Cardio-respiratory arrest [Fatal]
  - Proteinuria [Unknown]
  - Urge incontinence [Unknown]
  - Nocturia [Unknown]
  - Hypertensive nephropathy [Unknown]
  - Pollakiuria [Unknown]
  - Metabolic disorder [Fatal]
  - Micturition urgency [Unknown]
  - Chronic kidney disease [Fatal]
  - Nephropathy [Unknown]
  - Diabetic nephropathy [Unknown]
  - Type 2 diabetes mellitus [Fatal]
  - Acute kidney injury [Unknown]

NARRATIVE: CASE EVENT DATE: 20171103
